FAERS Safety Report 25264320 (Version 1)
Quarter: 2025Q2

REPORT INFORMATION
  Report Type: Spontaneous
  Country: US (occurrence: US)
  Receive Date: 20250502
  Receipt Date: 20250502
  Transmission Date: 20250716
  Serious: Yes (Death, Other)
  Sender: AMGEN
  Company Number: US-AMGEN-USASP2025082897

PATIENT

DRUGS (1)
  1. BEVACIZUMAB [Suspect]
     Active Substance: BEVACIZUMAB
     Indication: Brain radiation necrosis
     Route: 013

REACTIONS (17)
  - Death [Fatal]
  - Seizure [Unknown]
  - Radiation necrosis [Unknown]
  - Vasogenic cerebral oedema [Unknown]
  - Drug effective for unapproved indication [Unknown]
  - Incontinence [Unknown]
  - Somnolence [Unknown]
  - Headache [Unknown]
  - Off label use [Unknown]
  - Paraesthesia [Unknown]
  - Hypoaesthesia [Unknown]
  - Aphasia [Unknown]
  - Cognitive disorder [Unknown]
  - Confusional state [Unknown]
  - Memory impairment [Unknown]
  - Pain in extremity [Unknown]
  - Asthenia [Unknown]
